FAERS Safety Report 4486663-3 (Version None)
Quarter: 2004Q4

REPORT INFORMATION
  Report Type: 
  Country: None (occurrence: None)
  Receive Date: 20041021
  Receipt Date: 20041012
  Transmission Date: 20050328
  Serious: Yes (Disabling, Other)
  Sender: FDA-Public Use
  Company Number: 2004238704US

PATIENT
  Age: 40 Year
  Sex: Female
  Weight: 82.5 kg

DRUGS (2)
  1. DEPO-MEDROL [Suspect]
     Indication: SURGERY
     Dosage: SINGLE, OTHER
     Dates: start: 20010616, end: 20010616
  2. GELFOAM [Concomitant]

REACTIONS (16)
  - ARACHNOIDITIS [None]
  - ATONIC URINARY BLADDER [None]
  - CONSTIPATION [None]
  - DEATH OF CHILD [None]
  - DRUG INTOLERANCE [None]
  - HAEMORRHOID OPERATION [None]
  - HYPOAESTHESIA [None]
  - INSOMNIA [None]
  - OFF LABEL USE [None]
  - PAIN [None]
  - POST PROCEDURAL COMPLICATION [None]
  - PREGNANCY [None]
  - SYMPATHETIC NERVE DESTRUCTION [None]
  - THYROID DISORDER [None]
  - ULCER [None]
  - WEIGHT FLUCTUATION [None]
